FAERS Safety Report 25469416 (Version 1)
Quarter: 2025Q2

REPORT INFORMATION
  Report Type: Spontaneous
  Country: US (occurrence: US)
  Receive Date: 20250623
  Receipt Date: 20250623
  Transmission Date: 20250717
  Serious: Yes (Other)
  Sender: VERONA PHARMA
  Company Number: US-VERONA PHARMA-VER-005590

PATIENT
  Age: 62 Year
  Sex: Female

DRUGS (4)
  1. OHTUVAYRE [Suspect]
     Active Substance: ENSIFENTRINE
     Indication: Emphysema
     Dosage: 3 MILLIGRAM, BID
     Dates: start: 2025
  2. OHTUVAYRE [Suspect]
     Active Substance: ENSIFENTRINE
     Indication: Bronchitis
     Dosage: 3 MILLIGRAM, BID
     Dates: start: 202501
  3. OHTUVAYRE [Suspect]
     Active Substance: ENSIFENTRINE
     Indication: Asthma
  4. OHTUVAYRE [Suspect]
     Active Substance: ENSIFENTRINE
     Indication: Chronic obstructive pulmonary disease

REACTIONS (5)
  - Pneumonia [Unknown]
  - Product colour issue [Unknown]
  - Product dose omission issue [Unknown]
  - Product solubility abnormal [Unknown]
  - Device defective [Unknown]

NARRATIVE: CASE EVENT DATE: 20250511
